FAERS Safety Report 6526233-6 (Version None)
Quarter: 2009Q4

REPORT INFORMATION
  Report Type: 
  Country: None (occurrence: None)
  Receive Date: 20091228
  Receipt Date: 20091208
  Transmission Date: 20100525
  Serious: Yes (Death)
  Sender: FDA-Public Use
  Company Number: 20090587

PATIENT
  Age: 57 Year
  Sex: Male

DRUGS (1)
  1. LIDOCAINE HYDROCHLORIDE INJ [Suspect]
     Indication: TACHYCARDIA
     Dosage: 100 MG INTRAVENOUS BOLUS
     Route: 040

REACTIONS (6)
  - AORTIC INTRAMURAL HAEMATOMA [None]
  - CARDIAC ARREST [None]
  - CONDUCTION DISORDER [None]
  - NO THERAPEUTIC RESPONSE [None]
  - RENAL TUBULAR NECROSIS [None]
  - VENTRICULAR FIBRILLATION [None]
